FAERS Safety Report 10361393 (Version 1)
Quarter: 2014Q3

REPORT INFORMATION
  Report Type: Report from Study
  Country: US (occurrence: US)
  Receive Date: 20140805
  Receipt Date: 20140805
  Transmission Date: 20150326
  Serious: Yes (Hospitalization)
  Sender: FDA-Public Use
  Company Number: US-ROCHE-1444016

PATIENT
  Sex: Male
  Weight: 76.27 kg

DRUGS (8)
  1. PHOSLO [Concomitant]
     Active Substance: CALCIUM ACETATE
     Dosage: 2 WITH EACH MEAL
     Route: 048
  2. FLEXERIL [Concomitant]
     Active Substance: CYCLOBENZAPRINE HYDROCHLORIDE
     Dosage: PRN
     Route: 048
  3. AVASTIN [Suspect]
     Active Substance: BEVACIZUMAB
     Indication: COLORECTAL CANCER
     Route: 042
     Dates: start: 20140401
  4. LASIX [Concomitant]
     Active Substance: FUROSEMIDE
     Dosage: 3 DAILY
     Route: 048
  5. PERCOCET [Concomitant]
     Active Substance: ACETAMINOPHEN\OXYCODONE HYDROCHLORIDE
     Indication: PAIN
     Route: 048
  6. VISINE [Concomitant]
     Active Substance: TETRAHYDROZOLINE HYDROCHLORIDE
     Dosage: 1-2 DAILY
     Route: 065
  7. RENVELA [Concomitant]
     Active Substance: SEVELAMER CARBONATE
     Dosage: 2 WITH EACH MEAL
     Route: 048
  8. PREDNISONE. [Concomitant]
     Active Substance: PREDNISONE
     Dosage: 5 DAY COURSE;5 MG, 4 MG, 3 MG,2 MG, 1MG, COMPLETED
     Route: 065

REACTIONS (4)
  - Blood uric acid increased [Recovering/Resolving]
  - Burning sensation [Recovering/Resolving]
  - Lacrimation increased [Recovering/Resolving]
  - Pruritus [Recovering/Resolving]
